FAERS Safety Report 5989143-9 (Version None)
Quarter: 2008Q4

REPORT INFORMATION
  Report Type: 
  Country: None (occurrence: None)
  Receive Date: 20081209
  Receipt Date: 20081209
  Transmission Date: 20090506
  Serious: Yes (Hospitalization)
  Sender: FDA-Public Use
  Company Number: None

PATIENT
  Age: 70 Year
  Sex: Male
  Weight: 89 kg

DRUGS (10)
  1. SEROQUEL [Suspect]
     Dosage: 100MG PO BID
     Route: 048
     Dates: start: 20000101
  2. SPIRONOLACTONE [Concomitant]
  3. LASIX [Concomitant]
  4. DIGOXIN [Concomitant]
  5. GLYBURIDE [Concomitant]
  6. SIMVASTATIN [Concomitant]
  7. COREG [Concomitant]
  8. TERAZOSIN HCL [Concomitant]
  9. BENAZEPRIL HYDROCHLORIDE [Concomitant]
  10. FINASTERIDE [Concomitant]

REACTIONS (1)
  - CORONARY ARTERY DISEASE [None]
